FAERS Safety Report 4634147-1 (Version None)
Quarter: 2005Q2

REPORT INFORMATION
  Report Type: 
  Country: None (occurrence: None)
  Receive Date: 20050413
  Receipt Date: 20050329
  Transmission Date: 20051028
  Serious: Yes (Life-Threatening, Other)
  Sender: FDA-Public Use
  Company Number: JP-JNJFOC-20050402047

PATIENT
  Sex: Male

DRUGS (7)
  1. RISPERDAL [Suspect]
     Indication: SCHIZOPHRENIA
     Route: 049
  2. VALPROATE SODIUM [Concomitant]
     Route: 049
  3. VALPROATE SODIUM [Concomitant]
     Route: 049
  4. VALPROATE SODIUM [Concomitant]
     Route: 049
  5. BIPERIDEN HYDROCHLORIDE TAB [Concomitant]
     Route: 049
  6. BROMOCRIPTINE MESYLATE [Concomitant]
     Route: 049
  7. AMEZINIUM METILSULFATE [Concomitant]
     Indication: ORTHOSTATIC HYPOTENSION
     Route: 049

REACTIONS (1)
  - CHOKING [None]
